FAERS Safety Report 15340055 (Version 4)
Quarter: 2024Q2

REPORT INFORMATION
  Report Type: Report from Study
  Country: US (occurrence: US)
  Receive Date: 20180831
  Receipt Date: 20240628
  Transmission Date: 20240716
  Serious: No
  Sender: FDA-Public Use
  Company Number: US-JNJFOC-20180836374

PATIENT
  Age: 41 Year
  Sex: Male
  Weight: 106.69 kg

DRUGS (2)
  1. STELARA [Suspect]
     Active Substance: USTEKINUMAB
     Indication: Psoriasis
     Route: 058
     Dates: start: 20101008, end: 20110208
  2. STELARA [Suspect]
     Active Substance: USTEKINUMAB
     Route: 058
     Dates: start: 20110512, end: 20170810

REACTIONS (1)
  - Bronchiolitis [Recovered/Resolved]

NARRATIVE: CASE EVENT DATE: 20161201
